FAERS Safety Report 25274564 (Version 1)
Quarter: 2025Q2

REPORT INFORMATION
  Report Type: Spontaneous
  Country: FR (occurrence: FR)
  Receive Date: 20250506
  Receipt Date: 20250506
  Transmission Date: 20250717
  Serious: Yes (Other)
  Sender: PFIZER
  Company Number: None

PATIENT
  Age: 66 Year
  Sex: Male
  Weight: 75 kg

DRUGS (6)
  1. ENCORAFENIB [Suspect]
     Active Substance: ENCORAFENIB
     Indication: Adenocarcinoma of colon
     Dosage: CAPS 75 MG, 4DF PER DAY
     Route: 048
     Dates: start: 20250213, end: 20250227
  2. ENCORAFENIB [Suspect]
     Active Substance: ENCORAFENIB
     Dosage: CAPS 75 MG, 3DF PER DAY
     Route: 048
     Dates: start: 20250227, end: 20250314
  3. ENCORAFENIB [Suspect]
     Active Substance: ENCORAFENIB
     Dosage: CAPS 75 MG, 4 DF PER DAY
     Route: 048
     Dates: start: 20250314
  4. OXALIPLATIN [Concomitant]
     Active Substance: OXALIPLATIN
     Route: 065
  5. CETUXIMAB [Concomitant]
     Active Substance: CETUXIMAB
     Route: 065
  6. FLUOROURACIL [Concomitant]
     Active Substance: FLUOROURACIL
     Route: 065

REACTIONS (3)
  - Diarrhoea [Recovering/Resolving]
  - Asthenia [Recovering/Resolving]
  - Off label use [Unknown]

NARRATIVE: CASE EVENT DATE: 20250201
